FAERS Safety Report 8174389-4 (Version None)
Quarter: 2012Q1

REPORT INFORMATION
  Report Type: 
  Country: None (occurrence: None)
  Receive Date: 20120229
  Receipt Date: 20120220
  Transmission Date: 20120608
  Serious: Yes (Other)
  Sender: FDA-Public Use
  Company Number: CA-GLAXOSMITHKLINE-A0967900A

PATIENT
  Sex: Female

DRUGS (2)
  1. NICODERM CQ [Suspect]
     Indication: SMOKING CESSATION THERAPY
     Route: 062
  2. UNSPECIFIED MEDICATION [Concomitant]

REACTIONS (3)
  - INTENTIONAL DRUG MISUSE [None]
  - COLITIS ULCERATIVE [None]
  - CONDITION AGGRAVATED [None]
